FAERS Safety Report 9904545 (Version 3)
Quarter: 2014Q1

REPORT INFORMATION
  Report Type: Report from Study
  Country: IT (occurrence: IT)
  Receive Date: 20140218
  Receipt Date: 20140222
  Transmission Date: 20141002
  Serious: Yes (Death, Hospitalization)
  Sender: FDA-Public Use
  Company Number: IT-ROCHE-1173159

PATIENT
  Age: 80 Year
  Sex: Male
  Weight: 64 kg

DRUGS (24)
  1. METHOXY POLYETHYLENE GLYCOL-EPOETIN BETA [Suspect]
     Indication: NEPHROGENIC ANAEMIA
     Route: 042
     Dates: start: 20091229
  2. METHOXY POLYETHYLENE GLYCOL-EPOETIN BETA [Suspect]
     Route: 042
     Dates: start: 20131203
  3. METHOXY POLYETHYLENE GLYCOL-EPOETIN BETA [Suspect]
     Route: 045
     Dates: start: 20140105
  4. METHOXY POLYETHYLENE GLYCOL-EPOETIN BETA [Suspect]
     Route: 042
     Dates: start: 20130806
  5. CLARITHROMYCIN [Concomitant]
     Dosage: 250X2
     Route: 065
     Dates: start: 20131224, end: 20140109
  6. DUROGESIC [Concomitant]
     Route: 065
     Dates: start: 20131231, end: 20140106
  7. DUROGESIC [Concomitant]
     Route: 065
     Dates: start: 20140106, end: 20140122
  8. LANSOPRAZOLE [Concomitant]
     Route: 065
     Dates: start: 20121222
  9. FUROSEMIDE [Concomitant]
     Route: 065
     Dates: start: 20080508
  10. FOLIC ACID [Concomitant]
     Route: 065
     Dates: start: 20101214
  11. ACETYLSALICYLIC ACID [Concomitant]
     Route: 065
     Dates: start: 20110417
  12. MAALOX FORTE [Concomitant]
     Dosage: DAILY DOSE: 3 SPOON
     Route: 065
     Dates: start: 20110409
  13. PARACETAMOL [Concomitant]
     Route: 065
     Dates: start: 20120121
  14. PARACETAMOL [Concomitant]
     Route: 065
     Dates: start: 20131231, end: 20140124
  15. CLOPIDOGREL [Concomitant]
     Route: 065
     Dates: start: 20121221
  16. BISOPROLOL [Concomitant]
     Route: 065
     Dates: start: 20131216, end: 20140122
  17. ATORVASTATIN [Concomitant]
     Route: 065
     Dates: start: 20131216, end: 20140120
  18. AUGMENTIN [Concomitant]
     Dosage: 1 GR X 2
     Route: 065
     Dates: start: 20131216, end: 20131224
  19. MORPHINE [Concomitant]
     Route: 065
     Dates: start: 20140108, end: 20140122
  20. LEVOXACIN [Concomitant]
     Route: 065
     Dates: start: 20140111, end: 20140116
  21. TEICOPLANIN [Concomitant]
     Route: 065
     Dates: start: 20140116, end: 20140121
  22. CLEXANE [Concomitant]
     Route: 065
     Dates: start: 20131228, end: 20140123
  23. TRAMADOL [Concomitant]
     Dosage: XXGT2W
     Route: 065
     Dates: start: 20131206, end: 20140122
  24. KAYEXALATE [Concomitant]
     Dosage: 1 MIS
     Route: 065
     Dates: start: 20140118, end: 20140122

REACTIONS (3)
  - Ischaemic cardiomyopathy [Fatal]
  - Peripheral ischaemia [Not Recovered/Not Resolved]
  - Peripheral ischaemia [Not Recovered/Not Resolved]
